FAERS Safety Report 7692702-9 (Version None)
Quarter: 2011Q3

REPORT INFORMATION
  Report Type: 
  Country: None (occurrence: None)
  Receive Date: 20110819
  Receipt Date: 20110805
  Transmission Date: 20111222
  Serious: Yes (Other)
  Sender: FDA-Public Use
  Company Number: US-JNJFOC-20110709921

PATIENT
  Age: 48 Year
  Sex: Female

DRUGS (1)
  1. ROLAIDS EXTRA STRENGTH SOFTCHEWS CHERRY [Suspect]
     Indication: DYSPEPSIA
     Route: 048

REACTIONS (3)
  - TOOTH LOSS [None]
  - TOOTH DISORDER [None]
  - PRODUCT QUALITY ISSUE [None]
